FAERS Safety Report 16479115 (Version 1)
Quarter: 2019Q2

REPORT INFORMATION
  Report Type: Spontaneous
  Country: US (occurrence: US)
  Receive Date: 20190626
  Receipt Date: 20190626
  Transmission Date: 20190711
  Serious: Yes (Other)
  Sender: FDA-Public Use
  Company Number: US-SAOL THERAPEUTICS-2018SAO01005

PATIENT
  Sex: Male

DRUGS (2)
  1. LIORESAL [Suspect]
     Active Substance: BACLOFEN
     Dosage: ^A LITTLE OVER 300 ?G/DAY^
  2. LIORESAL [Suspect]
     Active Substance: BACLOFEN
     Dosage: 501.6 ?G, \DAY

REACTIONS (1)
  - Therapeutic response decreased [Recovered/Resolved]
